FAERS Safety Report 23739538 (Version 2)
Quarter: 2024Q4

REPORT INFORMATION
  Report Type: Report from Study
  Country: DE (occurrence: DE)
  Receive Date: 20240413
  Receipt Date: 20241014
  Transmission Date: 20250115
  Serious: No
  Sender: ROCHE
  Company Number: DE-ROCHE-3062115

PATIENT
  Age: 57 Year
  Sex: Female
  Weight: 50 kg

DRUGS (16)
  1. OCREVUS [Suspect]
     Active Substance: OCRELIZUMAB
     Indication: Primary progressive multiple sclerosis
     Route: 042
     Dates: start: 20201022, end: 20201119
  2. OCREVUS [Suspect]
     Active Substance: OCRELIZUMAB
     Route: 042
     Dates: start: 20210506
  3. BOTOX [Concomitant]
     Active Substance: ONABOTULINUMTOXINA
     Route: 030
     Dates: start: 20210223, end: 20210223
  4. BOTOX [Concomitant]
     Active Substance: ONABOTULINUMTOXINA
     Route: 030
     Dates: start: 20201201, end: 20201201
  5. BOTOX [Concomitant]
     Active Substance: ONABOTULINUMTOXINA
     Dosage: STRETCH SPASTICITY RIGHT FOOT
     Route: 030
     Dates: start: 20210518, end: 20210518
  6. BENSERAZIDE\LEVODOPA [Concomitant]
     Active Substance: BENSERAZIDE\LEVODOPA
     Indication: Restless legs syndrome
     Dosage: DEFINITION OF THE INTERVAL: AS REQUIRED
     Route: 048
     Dates: start: 20210223, end: 202104
  7. DYDROGESTERONE\ESTRADIOL [Concomitant]
     Active Substance: DYDROGESTERONE\ESTRADIOL
     Dosage: HORMONE REPLACEMENT THERAPY MENOPAUSAL SYMPTOMS
     Route: 048
  8. IBUPROFEN [Concomitant]
     Active Substance: IBUPROFEN
     Indication: Neck pain
     Dosage: DEFINITION OF THE INTERVAL: AS REQUIRED
     Dates: start: 20210604
  9. DALFAMPRIDINE [Concomitant]
     Active Substance: DALFAMPRIDINE
     Dosage: LIMITED WALKING ABILITY
     Route: 048
     Dates: start: 20210622, end: 202107
  10. NABIXIMOLS [Concomitant]
     Active Substance: NABIXIMOLS
     Route: 048
     Dates: start: 20220608
  11. METFORMIN [Concomitant]
     Active Substance: METFORMIN HYDROCHLORIDE
     Indication: Diabetes mellitus
  12. COMIRNATY [Concomitant]
     Indication: COVID-19 prophylaxis
     Route: 030
     Dates: start: 20210728, end: 20210728
  13. COMIRNATY [Concomitant]
     Route: 030
     Dates: start: 20210616, end: 20210616
  14. NEUPRO [Concomitant]
     Active Substance: ROTIGOTINE
     Indication: Restless legs syndrome
     Dates: start: 202008, end: 202102
  15. BACLOFEN [Concomitant]
     Active Substance: BACLOFEN
     Route: 048
     Dates: start: 20220222, end: 202203
  16. RAMIPRIL [Concomitant]
     Active Substance: RAMIPRIL
     Indication: Hypertension
     Route: 048

REACTIONS (4)
  - Influenza [Recovered/Resolved]
  - Drug hypersensitivity [Recovered/Resolved]
  - Platelet count increased [Recovered/Resolved]
  - Hypercholesterolaemia [Unknown]

NARRATIVE: CASE EVENT DATE: 20201023
